FAERS Safety Report 25104621 (Version 1)
Quarter: 2025Q1

REPORT INFORMATION
  Report Type: Spontaneous
  Country: US (occurrence: US)
  Receive Date: 20250321
  Receipt Date: 20250321
  Transmission Date: 20250409
  Serious: No
  Sender: DR REDDYS
  Company Number: US-DRL-USA-USA/2025/03/003500

PATIENT
  Age: 63 Year
  Sex: Male
  Weight: 83.44 kg

DRUGS (12)
  1. TAMOXIFEN CITRATE [Suspect]
     Active Substance: TAMOXIFEN CITRATE
     Indication: Product used for unknown indication
     Route: 065
  2. OGSIVEO [Suspect]
     Active Substance: NIROGACESTAT HYDROBROMIDE
     Indication: Soft tissue neoplasm
     Dates: start: 20240417
  3. OGSIVEO [Suspect]
     Active Substance: NIROGACESTAT HYDROBROMIDE
     Indication: Connective tissue neoplasm
     Route: 048
     Dates: start: 20240628
  4. OGSIVEO [Suspect]
     Active Substance: NIROGACESTAT HYDROBROMIDE
     Indication: Desmoid tumour
     Route: 048
  5. OGSIVEO [Suspect]
     Active Substance: NIROGACESTAT HYDROBROMIDE
     Indication: Abdominal discomfort
     Route: 048
  6. OGSIVEO [Suspect]
     Active Substance: NIROGACESTAT HYDROBROMIDE
     Indication: Diarrhoea
     Route: 048
     Dates: start: 20241022
  7. OGSIVEO [Suspect]
     Active Substance: NIROGACESTAT HYDROBROMIDE
     Route: 048
  8. OGSIVEO [Suspect]
     Active Substance: NIROGACESTAT HYDROBROMIDE
     Route: 048
     Dates: start: 20241201
  9. OGSIVEO [Suspect]
     Active Substance: NIROGACESTAT HYDROBROMIDE
     Route: 048
     Dates: start: 20240416
  10. OGSIVEO [Suspect]
     Active Substance: NIROGACESTAT HYDROBROMIDE
     Dates: start: 20240503
  11. OGSIVEO [Suspect]
     Active Substance: NIROGACESTAT HYDROBROMIDE
     Route: 065
  12. LOSARTAN [Concomitant]
     Active Substance: LOSARTAN
     Indication: Product used for unknown indication
     Route: 065

REACTIONS (22)
  - Diarrhoea [Not Recovered/Not Resolved]
  - Ophthalmic migraine [Unknown]
  - Blood phosphorus decreased [Recovering/Resolving]
  - Nasal dryness [Not Recovered/Not Resolved]
  - Blood potassium decreased [Unknown]
  - Therapy interrupted [Unknown]
  - Intentional underdose [Unknown]
  - Fatigue [Not Recovered/Not Resolved]
  - Inappropriate schedule of product administration [Unknown]
  - Paranasal sinus hyposecretion [Not Recovered/Not Resolved]
  - Dry mouth [Not Recovered/Not Resolved]
  - Dry skin [Recovered/Resolved]
  - Weight increased [Unknown]
  - Trigger finger [Recovering/Resolving]
  - Tendon pain [Unknown]
  - Nausea [Not Recovered/Not Resolved]
  - Tendonitis [Not Recovered/Not Resolved]
  - Stomatitis [Recovering/Resolving]
  - Ear infection [Unknown]
  - Hyperphagia [Unknown]
  - Infection [Recovering/Resolving]
  - Impaired healing [Unknown]

NARRATIVE: CASE EVENT DATE: 20240416
